FAERS Safety Report 14046899 (Version 1)
Quarter: 2017Q4

REPORT INFORMATION
  Report Type: Spontaneous
  Country: US (occurrence: US)
  Receive Date: 20171005
  Receipt Date: 20171005
  Transmission Date: 20180321
  Serious: No
  Sender: FDA-Public Use
  Company Number: US-EISAI MEDICAL RESEARCH-AP356-00574-SPO-US

PATIENT
  Age: 63 Year
  Sex: Female

DRUGS (5)
  1. BELVIQ XR [Suspect]
     Active Substance: LORCASERIN HYDROCHLORIDE
     Dosage: 20 MG ONCE DAILY
     Route: 048
     Dates: start: 201709
  2. VITAMIN SUPPLEMENTS [Concomitant]
     Active Substance: VITAMINS
  3. BELVIQ XR [Suspect]
     Active Substance: LORCASERIN HYDROCHLORIDE
     Dosage: 10 MG TWICE DAILY
     Route: 048
     Dates: start: 201405, end: 201411
  4. BELVIQ XR [Suspect]
     Active Substance: LORCASERIN HYDROCHLORIDE
     Indication: WEIGHT DECREASED
     Dosage: 10 MG ONCE DAILY
     Route: 048
     Dates: start: 201403, end: 201405
  5. BELVIQ XR [Suspect]
     Active Substance: LORCASERIN HYDROCHLORIDE
     Dosage: 10 MG TWICE DAILY
     Route: 048
     Dates: start: 20150112, end: 201501

REACTIONS (1)
  - Drug ineffective [Not Recovered/Not Resolved]

NARRATIVE: CASE EVENT DATE: 201709
